FAERS Safety Report 6382280-9 (Version None)
Quarter: 2009Q3

REPORT INFORMATION
  Report Type: 
  Country: None (occurrence: None)
  Receive Date: 20090930
  Receipt Date: 20090909
  Transmission Date: 20100115
  Serious: Yes (Life-Threatening, Hospitalization, Other)
  Sender: FDA-Public Use
  Company Number: US-BAYER-200933656NA

PATIENT
  Age: 49 Year
  Sex: Male
  Weight: 82 kg

DRUGS (1)
  1. MAGNEVIST [Suspect]
     Indication: DRUG USE FOR UNKNOWN INDICATION
     Dosage: ^16 MG^

REACTIONS (23)
  - AMNESIA [None]
  - ANAPHYLACTIC SHOCK [None]
  - ANGER [None]
  - ANXIETY [None]
  - BEREAVEMENT REACTION [None]
  - CONFUSIONAL STATE [None]
  - CONSTIPATION [None]
  - DEAFNESS [None]
  - DISTURBANCE IN ATTENTION [None]
  - DIZZINESS [None]
  - DRUG ADMINISTRATION ERROR [None]
  - DRY MOUTH [None]
  - FEAR [None]
  - FEELING ABNORMAL [None]
  - MENTAL DISORDER [None]
  - NAUSEA [None]
  - NERVOUSNESS [None]
  - NIGHTMARE [None]
  - PAIN [None]
  - POST-TRAUMATIC STRESS DISORDER [None]
  - RASH [None]
  - TINNITUS [None]
  - VERTIGO [None]
